FAERS Safety Report 13045773 (Version 1)
Quarter: 2016Q4

REPORT INFORMATION
  Report Type: Spontaneous
  Country: US (occurrence: US)
  Receive Date: 20161220
  Receipt Date: 20161220
  Transmission Date: 20170207
  Serious: Yes (Hospitalization)
  Sender: FDA-Public Use
  Company Number: None

PATIENT
  Age: 69 Year
  Sex: Female
  Weight: 59.02 kg

DRUGS (4)
  1. LOW DOSE ASPIRIN [Concomitant]
     Active Substance: ASPIRIN
  2. XELODA [Suspect]
     Active Substance: CAPECITABINE
     Indication: COLON CANCER STAGE III
     Dosage: 1650MG TWICE DAILY - TOTAL OF 3300MG, MOUTH
     Route: 048
     Dates: start: 20161013, end: 20161025
  3. DEXILANT [Concomitant]
     Active Substance: DEXLANSOPRAZOLE
  4. VITAMIN D [Concomitant]
     Active Substance: CHOLECALCIFEROL

REACTIONS (2)
  - Nonspecific reaction [None]
  - Toxicity to various agents [None]

NARRATIVE: CASE EVENT DATE: 20161025
